FAERS Safety Report 14744587 (Version 1)
Quarter: 2018Q2

REPORT INFORMATION
  Report Type: Spontaneous
  Country: US (occurrence: US)
  Receive Date: 20180411
  Receipt Date: 20180411
  Transmission Date: 20180711
  Serious: Yes (Death, Other)
  Sender: FDA-Public Use
  Company Number: US-CIPLA LTD.-2018US14881

PATIENT

DRUGS (6)
  1. FOSCARNET [Suspect]
     Active Substance: FOSCARNET
     Indication: NECROTISING RETINITIS
     Dosage: 2.4 MCG/0.1 ML
  2. PREDNISONE. [Suspect]
     Active Substance: PREDNISONE
     Indication: NECROTISING RETINITIS
     Dosage: 5 MG, UNK
     Route: 065
  3. FOSCARNET [Suspect]
     Active Substance: FOSCARNET
     Dosage: 45 MG/KG, UNK
     Route: 042
  4. PREDNISONE. [Suspect]
     Active Substance: PREDNISONE
     Dosage: 40 MG, DAILY
     Route: 065
  5. VALACYCLOVIR [Suspect]
     Active Substance: VALACYCLOVIR HYDROCHLORIDE
     Indication: NECROTISING RETINITIS
     Dosage: 500 MG, BID
     Route: 048
  6. ACYCLOVIR. [Suspect]
     Active Substance: ACYCLOVIR
     Indication: NECROTISING RETINITIS
     Dosage: 5 MG/KG, DAILY (HIGH DOSE)
     Route: 042

REACTIONS (3)
  - Death [Fatal]
  - Vitritis [Recovering/Resolving]
  - Retinal detachment [Unknown]
